FAERS Safety Report 6575631-3 (Version None)
Quarter: 2010Q1

REPORT INFORMATION
  Report Type: 
  Country: None (occurrence: None)
  Receive Date: 20100209
  Receipt Date: 20100203
  Transmission Date: 20100710
  Serious: Yes (Other)
  Sender: FDA-Public Use
  Company Number: D0065977A

PATIENT
  Sex: Male

DRUGS (3)
  1. REQUIP [Suspect]
     Indication: PARKINSON'S DISEASE
     Dosage: 24MG PER DAY
     Route: 048
  2. AZILECT [Suspect]
     Indication: PARKINSON'S DISEASE
     Dosage: 1MG IN THE MORNING
     Route: 065
  3. STALEVO 100 [Suspect]
     Indication: PARKINSON'S DISEASE
     Dosage: 125MG FIVE TIMES PER DAY
     Route: 065

REACTIONS (3)
  - DRUG INEFFECTIVE [None]
  - INAPPROPRIATE SCHEDULE OF DRUG ADMINISTRATION [None]
  - PARKINSON'S DISEASE [None]
